FAERS Safety Report 16229114 (Version 1)
Quarter: 2019Q2

REPORT INFORMATION
  Report Type: Spontaneous
  Country: SE (occurrence: SE)
  Receive Date: 20190423
  Receipt Date: 20190423
  Transmission Date: 20190711
  Serious: Yes (Hospitalization)
  Sender: FDA-Public Use
  Company Number: SE-JNJFOC-20190432320

PATIENT
  Age: 87 Year
  Sex: Female

DRUGS (9)
  1. TOILAX [Concomitant]
     Active Substance: BISACODYL
     Route: 065
  2. LAXIDO [Concomitant]
     Active Substance: POLYETHYLENE GLYCOL 3350\POTASSIUM CHLORIDE\SODIUM BICARBONATE\SODIUM CHLORIDE
     Route: 065
  3. KALCIPOS [Concomitant]
     Active Substance: CALCIUM CARBONATE
     Route: 065
  4. OXASCAND [Concomitant]
     Active Substance: OXAZEPAM
     Route: 065
  5. CILAXORAL [Concomitant]
     Active Substance: SODIUM PICOSULFATE
     Route: 065
  6. VISCOTEARS [Concomitant]
     Active Substance: CARBOMER
     Route: 065
  7. ESIDREX [Concomitant]
     Active Substance: HYDROCHLOROTHIAZIDE
     Route: 065
  8. XARELTO [Suspect]
     Active Substance: RIVAROXABAN
     Indication: DEEP VEIN THROMBOSIS
     Route: 048
  9. KLOPIDOGREL [Concomitant]
     Route: 065

REACTIONS (1)
  - Anaemia [Recovered/Resolved]

NARRATIVE: CASE EVENT DATE: 20190204
